FAERS Safety Report 10240243 (Version 1)
Quarter: 2014Q2

REPORT INFORMATION
  Report Type: Spontaneous
  Country: IT (occurrence: IT)
  Receive Date: 20140617
  Receipt Date: 20140617
  Transmission Date: 20141212
  Serious: Yes (Other)
  Sender: FDA-Public Use
  Company Number: PHHY2014IT074090

PATIENT
  Sex: Male

DRUGS (8)
  1. CICLOSPORIN [Suspect]
     Route: 064
  2. EVEROLIMUS [Suspect]
     Route: 064
  3. METHYLPREDNISOLONE [Suspect]
     Route: 064
  4. ATENOLOL [Suspect]
     Route: 064
  5. ATORVASTATIN [Suspect]
     Route: 064
  6. ACETYLSALICYLIC ACID [Suspect]
     Route: 064
  7. RANITIDINE [Suspect]
     Route: 064
  8. ENOXAPARIN [Suspect]
     Route: 064

REACTIONS (4)
  - Foetal growth restriction [Unknown]
  - Low birth weight baby [Unknown]
  - Premature baby [Unknown]
  - Foetal exposure during pregnancy [Unknown]
